FAERS Safety Report 9304844 (Version 1)
Quarter: 2013Q2

REPORT INFORMATION
  Report Type: Spontaneous
  Country: ES (occurrence: None)
  Receive Date: 20130521
  Receipt Date: 20130521
  Transmission Date: 20140414
  Serious: Yes (Other)
  Sender: FDA-Public Use
  Company Number: ES-ALKEM-000082

PATIENT
  Sex: 0

DRUGS (4)
  1. MYCOPHENOLATE MOFETIL [Suspect]
     Indication: IMMUNOSUPPRESSION
     Dosage: 1000.00-MG-2.00 / TIMES PER-1.0DAYS
  2. TACROLIMUS [Suspect]
     Indication: IMMUNOSUPPRESSION
  3. PREDNISONE(PREDNISONE) [Concomitant]
  4. METHYLPREDNISOLONE(METHYLP REDNISOLONE) [Concomitant]

REACTIONS (2)
  - B-cell lymphoma [None]
  - Epstein-Barr virus associated lymphoma [None]
